FAERS Safety Report 11274077 (Version 1)
Quarter: 2015Q3

REPORT INFORMATION
  Report Type: Spontaneous
  Country: US (occurrence: US)
  Receive Date: 20150715
  Receipt Date: 20150715
  Transmission Date: 20151125
  Serious: No
  Sender: FDA-Public Use
  Company Number: GXBR2015US001665

PATIENT
  Age: 85 Year
  Sex: Female
  Weight: 79.37 kg

DRUGS (1)
  1. LORAZEPAM ACTAVIS 0.5MG [Suspect]
     Active Substance: LORAZEPAM
     Indication: ANXIETY
     Dosage: 0.5 MG, QD
     Route: 048

REACTIONS (2)
  - Hypersensitivity [Unknown]
  - Stomatitis [Recovered/Resolved]
